FAERS Safety Report 7267793-X (Version None)
Quarter: 2011Q1

REPORT INFORMATION
  Report Type: 
  Country: None (occurrence: None)
  Receive Date: 20110201
  Receipt Date: 20110127
  Transmission Date: 20110831
  Serious: Yes (Other)
  Sender: FDA-Public Use
  Company Number: A0909840A

PATIENT
  Sex: Male

DRUGS (2)
  1. ANTIBIOTICS [Concomitant]
  2. ADVAIR [Suspect]
     Indication: SARCOIDOSIS
     Dosage: 1PUFF TWICE PER DAY
     Route: 055
     Dates: start: 20010101

REACTIONS (7)
  - THROAT IRRITATION [None]
  - BRONCHITIS [None]
  - HEADACHE [None]
  - PNEUMONIA PRIMARY ATYPICAL [None]
  - UPPER RESPIRATORY TRACT INFECTION [None]
  - OFF LABEL USE [None]
  - COUGH [None]
